FAERS Safety Report 13235917 (Version 1)
Quarter: 2017Q1

REPORT INFORMATION
  Report Type: Report from Study
  Country: DK (occurrence: DK)
  Receive Date: 20170215
  Receipt Date: 20170215
  Transmission Date: 20170428
  Serious: Yes (Hospitalization)
  Sender: FDA-Public Use
  Company Number: DK-TEVA-739915ISR

PATIENT

DRUGS (10)
  1. GABAPENTIN. [Suspect]
     Active Substance: GABAPENTIN
     Indication: PAIN
     Dosage: 1300 MILLIGRAM DAILY; 400MG+900MG
     Route: 048
  2. MORPHINE [Concomitant]
     Active Substance: MORPHINE
     Indication: PAIN
     Dosage: 20 MILLIGRAM DAILY; PATIENTS BELOW 70
     Route: 048
  3. MORPHINE [Concomitant]
     Active Substance: MORPHINE
     Indication: ANALGESIC THERAPY
     Dosage: 10 MILLIGRAM DAILY; PATIENTS ABOVE 70 YEARS
     Route: 048
  4. CELECOXIB. [Concomitant]
     Active Substance: CELECOXIB
     Dosage: 400 MILLIGRAM DAILY; POST OPERATIVE, DAY 1-6
  5. BUPIVACAINE. [Concomitant]
     Active Substance: BUPIVACAINE
     Indication: ANAESTHESIA
     Dosage: 0.5% GIVEN LUMBAR SPINAL
  6. KETOBEMIDONE [Concomitant]
     Active Substance: KETOBEMIDONE
  7. PARACETAMOL [Concomitant]
     Active Substance: ACETAMINOPHEN
     Indication: PAIN
     Dosage: PREOPERATIVE/POSTOPERATVE
     Route: 048
  8. OXYCODONE [Concomitant]
     Active Substance: OXYCODONE
     Indication: PAIN
  9. CELECOXIB. [Concomitant]
     Active Substance: CELECOXIB
     Indication: ANALGESIC THERAPY
     Dosage: PREOPERATIVE
  10. MORPHINE [Concomitant]
     Active Substance: MORPHINE
     Route: 042

REACTIONS (4)
  - Sedation [Unknown]
  - Visual impairment [Unknown]
  - Hypotension [Unknown]
  - Dizziness [Unknown]
